FAERS Safety Report 5556911-7 (Version None)
Quarter: 2007Q4

REPORT INFORMATION
  Report Type: 
  Country: None (occurrence: None)
  Receive Date: 20071211
  Receipt Date: 20071130
  Transmission Date: 20080405
  Serious: Yes (Other)
  Sender: FDA-Public Use
  Company Number: GXKR2007IN09898

PATIENT
  Age: 11 Year
  Sex: Female
  Weight: 44 kg

DRUGS (2)
  1. AMOXICILLIN, CLAVULANIC ACID, LACTOBACILLUS SPOROGENES (NGX)(AMOXICILL [Suspect]
     Indication: BRONCHITIS
     Dosage: 5 ML, BID, ORAL
     Route: 048
  2. ACETAMINOPHEN [Concomitant]

REACTIONS (6)
  - ABDOMINAL PAIN [None]
  - HAEMATEMESIS [None]
  - IRRITABILITY [None]
  - NAUSEA [None]
  - ORAL INTAKE REDUCED [None]
  - VOMITING [None]
